FAERS Safety Report 24409721 (Version 3)
Quarter: 2024Q4

REPORT INFORMATION
  Report Type: Report from Study
  Country: US (occurrence: US)
  Receive Date: 20241008
  Receipt Date: 20241219
  Transmission Date: 20250115
  Serious: Yes (Hospitalization, Other)
  Sender: EXELIXIS
  Company Number: US-EXELIXIS-CABO-24078481

PATIENT
  Sex: Male

DRUGS (13)
  1. CABOMETYX [Suspect]
     Active Substance: CABOZANTINIB S-MALATE
     Indication: Renal cancer
     Dosage: 40 MG, QD
     Route: 048
     Dates: start: 20240409
  2. CABOMETYX [Suspect]
     Active Substance: CABOZANTINIB S-MALATE
     Dosage: 60 MG, QD
     Route: 048
     Dates: start: 20240912
  3. CABOMETYX [Suspect]
     Active Substance: CABOZANTINIB S-MALATE
     Dosage: 40 MG, QD
     Route: 048
  4. CABOMETYX [Suspect]
     Active Substance: CABOZANTINIB S-MALATE
     Dosage: 60 MG, QD
     Route: 048
  5. OPDIVO [Concomitant]
     Active Substance: NIVOLUMAB
  6. TYLENOL [Concomitant]
     Active Substance: ACETAMINOPHEN
  7. ZOLEDRONIC [Concomitant]
     Active Substance: ZOLEDRONIC ACID
  8. EPINEPHRINE [Concomitant]
     Active Substance: EPINEPHRINE
  9. PREDNISONE [Concomitant]
     Active Substance: PREDNISONE
  10. QUESTRAN [Concomitant]
     Active Substance: CHOLESTYRAMINE
  11. SODIUM CHLORIDE [Concomitant]
     Active Substance: SODIUM CHLORIDE
  12. DERMOPLAST PAIN RELIEVING [Concomitant]
     Active Substance: BENZOCAINE\MENTHOL
  13. XGEVA [Concomitant]
     Active Substance: DENOSUMAB

REACTIONS (7)
  - Genital infection fungal [Unknown]
  - Colitis [Recovering/Resolving]
  - Epistaxis [Unknown]
  - Diarrhoea [Recovering/Resolving]
  - Fatigue [Not Recovered/Not Resolved]
  - Palmar-plantar erythrodysaesthesia syndrome [Unknown]
  - Arthralgia [Recovering/Resolving]
